FAERS Safety Report 16890646 (Version 1)
Quarter: 2019Q4

REPORT INFORMATION
  Report Type: Spontaneous
  Country: US (occurrence: US)
  Receive Date: 20191005
  Receipt Date: 20191005
  Transmission Date: 20200122
  Serious: Yes (Other)
  Sender: FDA-Public Use
  Company Number: None

PATIENT
  Age: 57 Year
  Sex: Female
  Weight: 64.8 kg

DRUGS (6)
  1. PROLIA INJECTION EVERY 6 MONTHS [Concomitant]
  2. EMGALITY INJECTIONS MONTHLY [Concomitant]
  3. TURMERIC [Concomitant]
     Active Substance: HERBALS\TURMERIC
  4. VITAMIN D3 [Concomitant]
     Active Substance: CHOLECALCIFEROL
  5. ZOMIG PRN [Concomitant]
  6. RHOPRESSA [Suspect]
     Active Substance: NETARSUDIL MESYLATE
     Indication: GLAUCOMA
     Dosage: ?          QUANTITY:1 DROP(S);?
     Route: 047
     Dates: start: 20190710, end: 20191001

REACTIONS (5)
  - Eyelids pruritus [None]
  - Eyelid irritation [None]
  - Swelling of eyelid [None]
  - Erythema of eyelid [None]
  - Periorbital swelling [None]

NARRATIVE: CASE EVENT DATE: 20190927
